FAERS Safety Report 11203633 (Version 1)
Quarter: 2015Q2

REPORT INFORMATION
  Report Type: Report from Study
  Country: CO (occurrence: CO)
  Receive Date: 20150619
  Receipt Date: 20150619
  Transmission Date: 20150821
  Serious: Yes (Other)
  Sender: FDA-Public Use
  Company Number: CO-ABBVIE-15K-036-1412120-00

PATIENT
  Age: 32 Year
  Sex: Female
  Weight: 68 kg

DRUGS (1)
  1. HUMIRA [Suspect]
     Active Substance: ADALIMUMAB
     Indication: RHEUMATOID ARTHRITIS
     Route: 058
     Dates: start: 20121128, end: 20150409

REACTIONS (4)
  - Vaginal haemorrhage [Recovering/Resolving]
  - Uterine leiomyoma [Recovering/Resolving]
  - Abdominal pain [Recovering/Resolving]
  - Uterine enlargement [Recovering/Resolving]

NARRATIVE: CASE EVENT DATE: 20141203
